FAERS Safety Report 5255405-6 (Version None)
Quarter: 2007Q1

REPORT INFORMATION
  Report Type: 
  Country: None (occurrence: None)
  Receive Date: 20070305
  Receipt Date: 20070221
  Transmission Date: 20070707
  Serious: Yes (Hospitalization)
  Sender: FDA-Public Use
  Company Number: JP-MERCK-0702USA04273

PATIENT
  Age: 46 Year
  Sex: Male

DRUGS (4)
  1. DECADRON [Suspect]
     Indication: MULTIPLE MYELOMA
     Route: 048
  2. THALIDOMIDE [Suspect]
     Indication: MULTIPLE MYELOMA
     Route: 065
  3. ENDOXAN [Concomitant]
     Indication: MULTIPLE MYELOMA
     Route: 065
     Dates: start: 20060501
  4. ALKERAN [Concomitant]
     Route: 065
     Dates: start: 20060601

REACTIONS (1)
  - GUILLAIN-BARRE SYNDROME [None]
